FAERS Safety Report 19172533 (Version 1)
Quarter: 2021Q2

REPORT INFORMATION
  Report Type: Spontaneous
  Country: US (occurrence: US)
  Receive Date: 20210422
  Receipt Date: 20210422
  Transmission Date: 20210717
  Serious: No
  Sender: FDA-Public Use
  Company Number: None

PATIENT
  Age: 41 Year
  Sex: Female
  Weight: 61.2 kg

DRUGS (1)
  1. LATUDA [Suspect]
     Active Substance: LURASIDONE HYDROCHLORIDE
     Indication: DEPRESSION
     Dates: start: 20210401, end: 20210421

REACTIONS (7)
  - Weight increased [None]
  - Nightmare [None]
  - Abnormal dreams [None]
  - Hallucination [None]
  - Decreased appetite [None]
  - Insomnia [None]
  - Hallucination, auditory [None]
